FAERS Safety Report 14793357 (Version 7)
Quarter: 2024Q4

REPORT INFORMATION
  Report Type: Report from Study
  Country: DE (occurrence: DE)
  Receive Date: 20180423
  Receipt Date: 20241021
  Transmission Date: 20250114
  Serious: Yes (Other)
  Sender: SANOFI AVENTIS
  Company Number: DE-NOVPHSZ-PHHY2017DE122112

PATIENT
  Age: 5 Year
  Sex: Female

DRUGS (19)
  1. ALEMTUZUMAB [Suspect]
     Active Substance: ALEMTUZUMAB
     Indication: Bone marrow conditioning regimen
     Dosage: 0.2 MG/KG, QD; (ON DAYS -9 AND -8 )
  2. ALEMTUZUMAB [Suspect]
     Active Substance: ALEMTUZUMAB
     Indication: Sickle cell disease
  3. FLUDARABINE PHOSPHATE [Suspect]
     Active Substance: FLUDARABINE PHOSPHATE
     Indication: Sickle cell disease
     Dosage: 30 MG/M2, QD; (ON DAYS -7 TO -3 )
  4. FLUDARABINE PHOSPHATE [Suspect]
     Active Substance: FLUDARABINE PHOSPHATE
     Indication: Bone marrow conditioning regimen
  5. CYCLOPHOSPHAMIDE [Suspect]
     Active Substance: CYCLOPHOSPHAMIDE
     Indication: Sickle cell disease
     Dosage: 14.5 MG/KG, QD; (ON DAYS -3 AND -2 )
  6. CYCLOPHOSPHAMIDE [Suspect]
     Active Substance: CYCLOPHOSPHAMIDE
     Indication: Bone marrow conditioning regimen
     Dosage: 50 MG/KG, QD; (N DAYS +3 AND +4 )
  7. CYCLOPHOSPHAMIDE [Suspect]
     Active Substance: CYCLOPHOSPHAMIDE
     Indication: Prophylaxis against graft versus host disease
     Dosage: UNK
  8. CYCLOPHOSPHAMIDE [Suspect]
     Active Substance: CYCLOPHOSPHAMIDE
     Dosage: 2 X 50 MG/KG/DAY +3 AND +4
  9. CYCLOPHOSPHAMIDE [Suspect]
     Active Substance: CYCLOPHOSPHAMIDE
     Dosage: 14.5 MG/KG DAILY; 2 X 14.5 MG/KG/DAY (DAYS -3 TO -2) OF THE HSCT
  10. MYCOPHENOLATE MOFETIL [Suspect]
     Active Substance: MYCOPHENOLATE MOFETIL
     Indication: Prophylaxis against graft versus host disease
     Dosage: 15 MG/KG, TID (FROM DAY +5 TO DAY +35 OF THE HSCT)); ROUTE IV NOS AND ORAL
  11. TACROLIMUS [Suspect]
     Active Substance: TACROLIMUS
     Indication: Prophylaxis against graft versus host disease
     Dosage: UNK; FROM DAY +5 UNTIL DAY +100 OF THE HSCT
     Route: 042
  12. TACROLIMUS [Suspect]
     Active Substance: TACROLIMUS
     Dosage: (PLASMA TROUGH LEVELS:5-15 NG/ML) FROM DAY +5 UNTIL DAY +100FROM DAY +5 UNTIL DAY +100 OF THE HSCT
     Route: 048
  13. THIOTEPA [Suspect]
     Active Substance: THIOTEPA
     Indication: Bone marrow conditioning regimen
     Dosage: 5 MG/KG, BID (10 MG/KG DAILY; 5 MILLIGRAM, TWO TIMES A DAY, ON DAY -4 OF THE HSCT)
     Route: 065
  14. THIOTEPA [Suspect]
     Active Substance: THIOTEPA
     Indication: Sickle cell disease
  15. TREOSULFAN [Suspect]
     Active Substance: TREOSULFAN
     Indication: Bone marrow conditioning regimen
     Dosage: 14 G/M2,QD ON DAYS -7 TO -5 OF THE HSCT
     Route: 065
  16. TREOSULFAN [Suspect]
     Active Substance: TREOSULFAN
     Indication: Sickle cell disease
  17. HYDROXYUREA [Concomitant]
     Active Substance: HYDROXYUREA
     Indication: Sickle cell disease
     Dosage: UNK
     Route: 065
  18. LEVETIRACETAM [Concomitant]
     Active Substance: LEVETIRACETAM
     Indication: Prophylaxis
     Dosage: UNK
  19. GRANULOCYTE COLONY-STIMULATING FACTOR NOS [Concomitant]
     Active Substance: GRANULOCYTE COLONY-STIMULATING FACTOR NOS
     Indication: Product used for unknown indication
     Dosage: 5 UG/KG, QD; FROM DAY +5 UNTIL ENGRAFTMENT
     Route: 042

REACTIONS (2)
  - Cytomegalovirus infection reactivation [Recovered/Resolved]
  - Off label use [Unknown]
